FAERS Safety Report 23323882 (Version 1)
Quarter: 2023Q4

REPORT INFORMATION
  Report Type: Report from Study
  Country: US (occurrence: US)
  Receive Date: 20231221
  Receipt Date: 20231221
  Transmission Date: 20240110
  Serious: No
  Sender: FDA-Public Use
  Company Number: US-ALXN-A202307645

PATIENT
  Sex: Female

DRUGS (1)
  1. ULTOMIRIS [Suspect]
     Active Substance: RAVULIZUMAB-CWVZ
     Indication: Myasthenia gravis
     Dosage: UNK
     Route: 065

REACTIONS (10)
  - Dairy intolerance [Unknown]
  - Gluten sensitivity [Unknown]
  - Condition aggravated [Unknown]
  - Abdominal distension [Unknown]
  - Hormone level abnormal [Unknown]
  - Weight increased [Unknown]
  - Poor venous access [Unknown]
  - Back pain [Unknown]
  - Diarrhoea [Unknown]
  - Muscle spasms [Unknown]
